FAERS Safety Report 25952143 (Version 1)
Quarter: 2025Q4

REPORT INFORMATION
  Report Type: Spontaneous
  Country: PR (occurrence: PR)
  Receive Date: 20251023
  Receipt Date: 20251023
  Transmission Date: 20260117
  Serious: Yes (Death, Other)
  Sender: BRISTOL-MYERS SQUIBB COMPANY
  Company Number: PR-BRISTOL-MYERS SQUIBB COMPANY-2025-143642

PATIENT
  Age: 65 Year
  Sex: Male
  Weight: 68.95 kg

DRUGS (1)
  1. POMALYST [Suspect]
     Active Substance: POMALIDOMIDE
     Indication: Plasma cell myeloma
     Dosage: TAKE ONE CAPSULE DAILY FOR 21 DAYS, REST FOR A WEEK. 28 DAY CYCLE
     Dates: start: 202509

REACTIONS (1)
  - Death [Fatal]

NARRATIVE: CASE EVENT DATE: 20251015
